FAERS Safety Report 9800007 (Version 1)
Quarter: 2014Q1

REPORT INFORMATION
  Report Type: Spontaneous
  Country: US (occurrence: US)
  Receive Date: 20140106
  Receipt Date: 20140106
  Transmission Date: 20141002
  Serious: No
  Sender: FDA-Public Use
  Company Number: US-GILEAD-2010-0030817

PATIENT
  Age: 69 Year
  Sex: Female

DRUGS (6)
  1. LETAIRIS [Suspect]
     Indication: PULMONARY ARTERIAL HYPERTENSION
     Route: 048
     Dates: start: 20100629, end: 20100715
  2. PAXIL [Concomitant]
  3. CRESTOR [Concomitant]
  4. LASIX [Concomitant]
  5. LOTREL [Concomitant]
  6. COZAAR [Concomitant]

REACTIONS (1)
  - Oxygen saturation decreased [Recovering/Resolving]
